FAERS Safety Report 16397758 (Version 2)
Quarter: 2019Q3

REPORT INFORMATION
  Report Type: Report from Study
  Country: CN (occurrence: CN)
  Receive Date: 20190606
  Receipt Date: 20190722
  Transmission Date: 20191004
  Serious: Yes (Death)
  Sender: FDA-Public Use
  Company Number: CN-ROCHE-2331647

PATIENT
  Age: 69 Year
  Sex: Female
  Weight: 54 kg

DRUGS (18)
  1. PACLITAXEL. [Suspect]
     Active Substance: PACLITAXEL
     Indication: OVARIAN CANCER
     Dosage: ON DAY 1 OF EACH 21-DAY CYCLE?DATE OF MOST RECENT DOSE OF PACLITAXEL (213 MG) ADMINISTERED PRIOR TO
     Route: 042
     Dates: start: 20180926
  2. SODIUM CHLORIDE. [Concomitant]
     Active Substance: SODIUM CHLORIDE
     Route: 065
     Dates: start: 20190504, end: 20190504
  3. DICLOFENAC SODIUM. [Concomitant]
     Active Substance: DICLOFENAC SODIUM
     Indication: PAIN IN EXTREMITY
     Route: 065
     Dates: start: 20190429
  4. SOLIFENACIN SUCCINATE. [Concomitant]
     Active Substance: SOLIFENACIN SUCCINATE
     Dosage: SOLIFENACIN SUCCINATE FOR TREATMENT OF URINARY DANBAI
     Route: 065
     Dates: start: 20190430
  5. BEVACIZUMAB. [Suspect]
     Active Substance: BEVACIZUMAB
     Indication: OVARIAN CANCER
     Dosage: STARTING WITH CYCLE 2 FOR A TOTAL OF 5 CYCLES?DATE OF MOST RECENT DOSE OF BEVACIZUMAB (825 MG) ADMIN
     Route: 042
     Dates: start: 20181019
  6. CHLORPROMAZINE HYDROCHLORIDE. [Concomitant]
     Active Substance: CHLORPROMAZINE HYDROCHLORIDE
     Indication: POOR QUALITY SLEEP
     Route: 065
  7. ALBUMIN PREPARED FROM HUMAN PLASMA [Concomitant]
     Route: 065
     Dates: start: 20190504, end: 20190504
  8. CARBOPLATIN. [Suspect]
     Active Substance: CARBOPLATIN
     Indication: OVARIAN CANCER
     Dosage: TO ACHIEVE A TARGET AREA UNDER THE CURVE (AUC) OF 6 MILLIGRAMS PER MILLILITER*MINUTE (MG/ML*MIN) ON
     Route: 042
     Dates: start: 20180926
  9. IRON PROTEINSUCCINYLATE [Concomitant]
     Indication: ANAEMIA
     Route: 065
     Dates: start: 20190504
  10. ALBUMIN PREPARED FROM HUMAN PLASMA [Concomitant]
     Indication: HYPOALBUMINAEMIA
     Route: 065
     Dates: start: 20190430, end: 20190430
  11. POTASSIUM CHLORIDE. [Concomitant]
     Active Substance: POTASSIUM CHLORIDE
     Route: 065
     Dates: start: 20190505
  12. TORASEMIDE [Concomitant]
     Active Substance: TORSEMIDE
     Indication: POLYURIA
     Route: 065
     Dates: start: 20190430, end: 20190430
  13. OXYGEN. [Concomitant]
     Active Substance: OXYGEN
     Indication: AGITATION
     Route: 065
  14. POTASSIUM CHLORIDE. [Concomitant]
     Active Substance: POTASSIUM CHLORIDE
     Indication: HYPOKALAEMIA
     Route: 065
     Dates: start: 20190502, end: 20190505
  15. SODIUM CHLORIDE. [Concomitant]
     Active Substance: SODIUM CHLORIDE
     Indication: HYPONATRAEMIA
     Route: 065
     Dates: start: 20190429, end: 20190430
  16. TORASEMIDE [Concomitant]
     Active Substance: TORSEMIDE
     Route: 065
     Dates: start: 20190504, end: 20190504
  17. PALONOSETRON HYDROCHLORIDE. [Concomitant]
     Active Substance: PALONOSETRON HYDROCHLORIDE
     Indication: VOMITING
     Route: 065
     Dates: start: 20190504, end: 20190504
  18. ATEZOLIZUMAB. [Suspect]
     Active Substance: ATEZOLIZUMAB
     Indication: OVARIAN CANCER
     Dosage: ON DAY 1 OF EACH 21-DAY CYCLE FOR A TOTAL OF 6 CYCLES?DATE OF MOST RECENT DOSE OF ATEZOLIZUMAB (1200
     Route: 042
     Dates: start: 20180926

REACTIONS (1)
  - Death [Fatal]

NARRATIVE: CASE EVENT DATE: 20190530
